FAERS Safety Report 15802844 (Version 1)
Quarter: 2019Q1

REPORT INFORMATION
  Report Type: Report from Study
  Country: GB (occurrence: GB)
  Receive Date: 20190109
  Receipt Date: 20190109
  Transmission Date: 20190417
  Serious: Yes (Hospitalization)
  Sender: FDA-Public Use
  Company Number: GB-JNJFOC-20181018583

PATIENT
  Age: 58 Year
  Sex: Male

DRUGS (1)
  1. STELARA [Suspect]
     Active Substance: USTEKINUMAB
     Indication: PRODUCT USED FOR UNKNOWN INDICATION
     Route: 058
     Dates: start: 20160705

REACTIONS (2)
  - Arthritis [Not Recovered/Not Resolved]
  - Campylobacter gastroenteritis [Recovering/Resolving]

NARRATIVE: CASE EVENT DATE: 20181026
